FAERS Safety Report 9299137 (Version 1)
Quarter: 2013Q2

REPORT INFORMATION
  Report Type: Spontaneous
  Country: DK (occurrence: DK)
  Receive Date: 20130520
  Receipt Date: 20130520
  Transmission Date: 20140414
  Serious: Yes (Hospitalization)
  Sender: FDA-Public Use
  Company Number: DK-MYLANLABS-2013S1010348

PATIENT
  Age: 67 Year
  Sex: Female

DRUGS (4)
  1. AMIODARONE [Suspect]
     Route: 065
  2. DABIGATRAN ETEXILATE [Interacting]
     Route: 065
  3. IRON [Concomitant]
     Indication: MINERAL SUPPLEMENTATION
     Route: 065
  4. FOLIC ACID [Concomitant]
     Route: 065

REACTIONS (2)
  - Gastrointestinal haemorrhage [Recovering/Resolving]
  - Drug interaction [Recovering/Resolving]
